FAERS Safety Report 8872301 (Version 1)
Quarter: 2012Q4

REPORT INFORMATION
  Report Type: 
  Country: US (occurrence: US)
  Receive Date: 20121026
  Receipt Date: 20121026
  Transmission Date: 20130627
  Serious: No
  Sender: FDA-Public Use
  Company Number: US-AMGEN-USASP2012049244

PATIENT
  Age: 49 Year
  Sex: Female
  Weight: 50.79 kg

DRUGS (12)
  1. ENBREL [Suspect]
     Indication: PRODUCT USED FOR UNKNOWN INDICATION
     Dosage: 50 mg, qwk
     Route: 058
  2. CLONAZEPAM [Concomitant]
     Dosage: 0.5 mg, UNK
  3. AXID AR [Concomitant]
     Dosage: 75 mg, UNK
  4. CATAFLAM                           /00372302/ [Concomitant]
     Dosage: 50 mg, UNK
  5. FOLIC ACID [Concomitant]
     Dosage: 20 mg, UNK
  6. HYDROCHLOROTH [Concomitant]
     Dosage: 12.5 mg, UNK
  7. ASPIRIN E.C [Concomitant]
     Dosage: 81 mg, UNK
  8. MULTIVITAMIN                       /00097801/ [Concomitant]
     Dosage: UNK
  9. IRON                               /00023503/ [Concomitant]
     Dosage: 18 mg, UNK
  10. BENADRYL ALLERGY                   /00000402/ [Concomitant]
     Dosage: 25 mg, UNK
  11. CICLOPIROX [Concomitant]
     Dosage: 8 %, UNK
  12. METHOTREXATE [Concomitant]
     Dosage: 2.5 mg, UNK

REACTIONS (2)
  - Rash pruritic [Unknown]
  - Rash papular [Unknown]
